FAERS Safety Report 8140018-9 (Version None)
Quarter: 2012Q1

REPORT INFORMATION
  Report Type: 
  Country: None (occurrence: None)
  Receive Date: 20120215
  Receipt Date: 20120209
  Transmission Date: 20120608
  Serious: Yes (Other)
  Sender: FDA-Public Use
  Company Number: BR-BIOMARINP-002307

PATIENT
  Sex: Female
  Weight: 13 kg

DRUGS (1)
  1. NAGLAZYME [Suspect]
     Indication: MUCOPOLYSACCHARIDOSIS VI
     Route: 042
     Dates: start: 20101108

REACTIONS (2)
  - SURGERY [None]
  - UMBILICAL HERNIA [None]
